FAERS Safety Report 5404692-X (Version None)
Quarter: 2007Q3

REPORT INFORMATION
  Report Type: 
  Country: None (occurrence: None)
  Receive Date: 20070731
  Receipt Date: 20070717
  Transmission Date: 20080115
  Serious: Yes (Death)
  Sender: FDA-Public Use
  Company Number: POMP-11122

PATIENT
  Age: 14 Month
  Sex: Male

DRUGS (7)
  1. MYOZYME [Suspect]
     Indication: GLYCOGEN STORAGE DISEASE TYPE II
     Dosage: 20 MG/KG Q2WKS IV
     Route: 042
  2. ROCEPHIN [Concomitant]
  3. VANCOMYCIN [Concomitant]
  4. FORTUM [Concomitant]
  5. AMIKACIN [Concomitant]
  6. MERONEM [Concomitant]
  7. LASIX [Concomitant]

REACTIONS (2)
  - DISEASE PROGRESSION [None]
  - GLYCOGEN STORAGE DISEASE TYPE II [None]
